FAERS Safety Report 24689704 (Version 5)
Quarter: 2025Q1

REPORT INFORMATION
  Report Type: Spontaneous
  Country: JP (occurrence: JP)
  Receive Date: 20241203
  Receipt Date: 20250130
  Transmission Date: 20250408
  Serious: Yes (Hospitalization)
  Sender: ROCHE
  Company Number: JP-ROCHE-10000146675

PATIENT
  Age: 19 Year
  Sex: Male
  Weight: 61 kg

DRUGS (10)
  1. RITUXAN [Suspect]
     Active Substance: RITUXIMAB
     Indication: Nephrotic syndrome
     Route: 040
     Dates: start: 20120822, end: 20120822
  2. RITUXAN [Suspect]
     Active Substance: RITUXIMAB
     Route: 040
     Dates: start: 20191016, end: 20191016
  3. RITUXAN [Suspect]
     Active Substance: RITUXIMAB
     Route: 040
     Dates: start: 20241116, end: 20241116
  4. HYDROXYZINE PAMOATE [Concomitant]
     Active Substance: HYDROXYZINE PAMOATE
  5. SOLU-MEDROL [Concomitant]
     Active Substance: METHYLPREDNISOLONE SODIUM SUCCINATE
     Route: 040
     Dates: start: 20241116, end: 20241116
  6. HYDROXYZINE HYDROCHLORIDE [Concomitant]
     Active Substance: HYDROXYZINE HYDROCHLORIDE
     Route: 040
     Dates: start: 20241116, end: 20241116
  7. CALONAL [Concomitant]
     Active Substance: ACETAMINOPHEN
     Route: 048
     Dates: start: 20241116, end: 20241116
  8. POLARAMINE [Concomitant]
     Active Substance: DEXCHLORPHENIRAMINE MALEATE
     Route: 048
     Dates: start: 20241116, end: 20241116
  9. SULFAMETHOXAZOLE\TRIMETHOPRIM [Concomitant]
     Active Substance: SULFAMETHOXAZOLE\TRIMETHOPRIM
     Route: 048
     Dates: start: 20241116, end: 20241116
  10. CELLCEPT [Concomitant]
     Active Substance: MYCOPHENOLATE MOFETIL
     Indication: Nephrotic syndrome
     Route: 048

REACTIONS (4)
  - Serum sickness [Recovering/Resolving]
  - Oropharyngeal discomfort [Recovering/Resolving]
  - Flushing [Recovered/Resolved]
  - Oropharyngeal discomfort [Unknown]

NARRATIVE: CASE EVENT DATE: 20120822
